FAERS Safety Report 13725974 (Version 2)
Quarter: 2017Q4

REPORT INFORMATION
  Report Type: Spontaneous
  Country: GB (occurrence: GB)
  Receive Date: 20170706
  Receipt Date: 20171013
  Transmission Date: 20180320
  Serious: Yes (Death, Other)
  Sender: FDA-Public Use
  Company Number: GB-BAYER-2017-124372

PATIENT
  Age: 57 Year
  Sex: Female
  Weight: 68 kg

DRUGS (2)
  1. GADOVIST [Suspect]
     Active Substance: GADOBUTROL
     Indication: ARTERIOVENOUS MALFORMATION
  2. GADOVIST [Suspect]
     Active Substance: GADOBUTROL
     Indication: ARTERIOGRAM CAROTID
     Dosage: 6 ML, ONCE
     Route: 042
     Dates: start: 20170623, end: 20170623

REACTIONS (2)
  - Cerebral infarction [Fatal]
  - Malaise [None]

NARRATIVE: CASE EVENT DATE: 201706
